FAERS Safety Report 5429793-1 (Version None)
Quarter: 2007Q3

REPORT INFORMATION
  Report Type: 
  Country: None (occurrence: None)
  Receive Date: 20070827
  Receipt Date: 20070815
  Transmission Date: 20080115
  Serious: Yes (Hospitalization)
  Sender: FDA-Public Use
  Company Number: 07-001697

PATIENT
  Age: 20 Year
  Sex: Female
  Weight: 56.7 kg

DRUGS (1)
  1. LOESTRIN 24 FE [Suspect]
     Indication: ACNE
     Dosage: 20/ 1000 UG, QD, ORAL
     Route: 048
     Dates: start: 20070610

REACTIONS (3)
  - AMENORRHOEA [None]
  - HYPOMENORRHOEA [None]
  - KIDNEY INFECTION [None]
